FAERS Safety Report 8934206 (Version 2)
Quarter: 2012Q4

REPORT INFORMATION
  Report Type: Report from Study
  Country: AU (occurrence: AU)
  Receive Date: 20121129
  Receipt Date: 20121207
  Transmission Date: 20130627
  Serious: Yes (Other)
  Sender: FDA-Public Use
  Company Number: AU-GENZYME-CAMP-1002581

PATIENT
  Age: 48 Year
  Sex: Female
  Weight: 55.5 kg

DRUGS (2)
  1. ALEMTUZUMAB [Suspect]
     Indication: MULTIPLE SCLEROSIS
     Dosage: 12 mg, qd
     Route: 042
     Dates: start: 20100630, end: 20100702
  2. ALEMTUZUMAB [Suspect]
     Dosage: 12 mg, qd
     Route: 042
     Dates: start: 20090629, end: 20090703

REACTIONS (1)
  - Basedow^s disease [Not Recovered/Not Resolved]
